FAERS Safety Report 5751661-6 (Version None)
Quarter: 2008Q2

REPORT INFORMATION
  Report Type: 
  Country: None (occurrence: None)
  Receive Date: 20080528
  Receipt Date: 20080522
  Transmission Date: 20081010
  Serious: Yes (Other)
  Sender: FDA-Public Use
  Company Number: PHNU2008DE01889

PATIENT

DRUGS (3)
  1. RASILEZ [Suspect]
     Dosage: 1 DF, QD
     Dates: start: 20080301, end: 20080501
  2. NIFE ^CT-ARZNEIMITTEL^ [Concomitant]
  3. DYNACIL [Concomitant]

REACTIONS (1)
  - TACHYARRHYTHMIA [None]
